FAERS Safety Report 24204574 (Version 2)
Quarter: 2024Q3

REPORT INFORMATION
  Report Type: Report from Study
  Country: US (occurrence: US)
  Receive Date: 20240813
  Receipt Date: 20240821
  Transmission Date: 20241017
  Serious: Yes (Hospitalization, Other)
  Sender: ABBVIE
  Company Number: US-ABBVIE-5875441

PATIENT
  Age: 65 Year
  Sex: Female
  Weight: 79.832 kg

DRUGS (1)
  1. SKYRIZI [Suspect]
     Active Substance: RISANKIZUMAB-RZAA
     Indication: Psoriatic arthropathy
     Dosage: UNKNOWN
     Route: 058
     Dates: start: 20240320

REACTIONS (3)
  - Cervicectomy [Recovering/Resolving]
  - Urinary bladder rupture [Recovering/Resolving]
  - Ureteral stent insertion [Recovering/Resolving]

NARRATIVE: CASE EVENT DATE: 20240716
